FAERS Safety Report 6261508-X (Version None)
Quarter: 2009Q3

REPORT INFORMATION
  Report Type: 
  Country: None (occurrence: None)
  Receive Date: 20090702
  Receipt Date: 20090414
  Transmission Date: 20100115
  Serious: No
  Sender: FDA-Public Use
  Company Number: 1000005775

PATIENT
  Age: 68 Year
  Sex: Male

DRUGS (6)
  1. BYSTOLIC [Suspect]
     Indication: ATRIAL FIBRILLATION
     Dosage: 2.5 MG (2.5 MG,1 IN 1 D),ORAL
     Route: 048
     Dates: start: 20081101
  2. BYSTOLIC [Suspect]
     Indication: NEUROPATHY PERIPHERAL
     Dosage: 2.5 MG (2.5 MG,1 IN 1 D),ORAL
     Route: 048
     Dates: start: 20081101
  3. COUMADIN [Concomitant]
  4. ASTELIN [Concomitant]
  5. HYOSCYAMINE [Concomitant]
  6. RITUXIMAB [Concomitant]

REACTIONS (2)
  - GASTROOESOPHAGEAL REFLUX DISEASE [None]
  - RASH [None]
